FAERS Safety Report 18341641 (Version 1)
Quarter: 2020Q4

REPORT INFORMATION
  Report Type: Spontaneous
  Country: KW (occurrence: KW)
  Receive Date: 20201004
  Receipt Date: 20201004
  Transmission Date: 20210113
  Serious: Yes (Other)
  Sender: FDA-Public Use
  Company Number: KW-ELI_LILLY_AND_COMPANY-KW202009009693

PATIENT
  Sex: Male

DRUGS (4)
  1. LEUCOVORINE [Concomitant]
     Active Substance: LEUCOVORIN
     Indication: ADENOCARCINOMA OF COLON
     Dosage: UNK, UNKNOWN
     Route: 065
     Dates: start: 20200801
  2. RAMUCIRUMAB [Suspect]
     Active Substance: RAMUCIRUMAB
     Indication: ADENOCARCINOMA OF COLON
     Dosage: UNK, UNKNOWN
     Route: 065
     Dates: start: 20200801
  3. FLUOROURACIL 5 FU [Concomitant]
     Active Substance: FLUOROURACIL
     Indication: ADENOCARCINOMA OF COLON
     Dosage: UNK, UNKNOWN
     Route: 065
     Dates: start: 20200801
  4. IRINOTECAN [Concomitant]
     Active Substance: IRINOTECAN
     Indication: ADENOCARCINOMA OF COLON
     Dosage: UNK, UNKNOWN
     Route: 065
     Dates: start: 20200801

REACTIONS (1)
  - Carcinoembryonic antigen increased [Unknown]
